FAERS Safety Report 19569972 (Version 3)
Quarter: 2023Q1

REPORT INFORMATION
  Report Type: Report from Study
  Country: US (occurrence: US)
  Receive Date: 20210716
  Receipt Date: 20230209
  Transmission Date: 20230417
  Serious: Yes (Death, Other)
  Sender: FDA-Public Use
  Company Number: US-PFIZER INC-2021850280

PATIENT
  Age: 27 Year

DRUGS (3)
  1. XANAX [Interacting]
     Active Substance: ALPRAZOLAM
     Indication: Product used for unknown indication
     Dosage: UNK
     Route: 055
  2. SUBOXONE [Interacting]
     Active Substance: BUPRENORPHINE HYDROCHLORIDE\NALOXONE HYDROCHLORIDE
     Indication: Product used for unknown indication
     Dosage: UNK
     Route: 055
  3. SUBOXONE [Interacting]
     Active Substance: BUPRENORPHINE HYDROCHLORIDE\NALOXONE HYDROCHLORIDE
     Indication: Product used for unknown indication
     Dosage: UNK
     Route: 065

REACTIONS (5)
  - Drug abuse [Fatal]
  - Accidental overdose [Fatal]
  - Toxicity to various agents [Fatal]
  - Intentional product misuse [Fatal]
  - Drug interaction [Fatal]
